FAERS Safety Report 18322889 (Version 2)
Quarter: 2020Q4

REPORT INFORMATION
  Report Type: Spontaneous
  Country: US (occurrence: US)
  Receive Date: 20200929
  Receipt Date: 20201026
  Transmission Date: 20210113
  Serious: Yes (Hospitalization)
  Sender: FDA-Public Use
  Company Number: US-ACCORD-202953

PATIENT
  Age: 63 Year
  Sex: Female
  Weight: 68.04 kg

DRUGS (2)
  1. ARIPIPRAZOLE ACCORD [Suspect]
     Active Substance: ARIPIPRAZOLE
     Indication: DEPRESSION
     Dosage: 2MG +10MG TABLETS, ONCE A DAY
     Route: 048
     Dates: start: 202005
  2. INSULIN [Concomitant]
     Active Substance: INSULIN NOS

REACTIONS (2)
  - Cerebrovascular accident [Not Recovered/Not Resolved]
  - Limb discomfort [Not Recovered/Not Resolved]

NARRATIVE: CASE EVENT DATE: 20200917
